FAERS Safety Report 5206120-6 (Version None)
Quarter: 2007Q1

REPORT INFORMATION
  Report Type: 
  Country: None (occurrence: None)
  Receive Date: 20070108
  Receipt Date: 20061229
  Transmission Date: 20070707
  Serious: Yes (Other)
  Sender: FDA-Public Use
  Company Number: 234443

PATIENT
  Sex: Female

DRUGS (2)
  1. LUCENTIS [Suspect]
     Indication: MACULAR DEGENERATION
     Dosage: INTRAVITREAL
  2. AVASTIN [Suspect]
     Indication: MACULAR DEGENERATION
     Dates: start: 20060101

REACTIONS (1)
  - INTRAOCULAR PRESSURE INCREASED [None]
